FAERS Safety Report 7258171-8 (Version None)
Quarter: 2011Q1

REPORT INFORMATION
  Report Type: 
  Country: None (occurrence: None)
  Receive Date: 20110129
  Receipt Date: 20100831
  Transmission Date: 20110831
  Serious: Yes (Hospitalization)
  Sender: FDA-Public Use
  Company Number: US-ABBOTT-10P-163-0657823-00

PATIENT
  Sex: Male
  Weight: 72.64 kg

DRUGS (5)
  1. LISINOPRIL [Concomitant]
     Indication: RENAL DISORDER
  2. LOVASTATIN [Concomitant]
     Indication: BLOOD CHOLESTEROL INCREASED
  3. HUMIRA [Suspect]
     Indication: RHEUMATOID ARTHRITIS
     Dates: start: 20091001
  4. ASPIRIN [Concomitant]
     Indication: CARDIAC DISORDER
  5. TOPROL-XL [Concomitant]
     Indication: CARDIAC DISORDER

REACTIONS (2)
  - PNEUMONIA [None]
  - DYSPNOEA [None]
